FAERS Safety Report 10060025 (Version 1)
Quarter: 2014Q2

REPORT INFORMATION
  Report Type: Spontaneous
  Country: US (occurrence: US)
  Receive Date: 20140404
  Receipt Date: 20140404
  Transmission Date: 20141212
  Serious: Yes (Other)
  Sender: FDA-Public Use
  Company Number: US-BAYER-2014-050473

PATIENT
  Age: 43 Year
  Sex: Female

DRUGS (1)
  1. BETASERON [Suspect]
     Indication: MULTIPLE SCLEROSIS
     Dosage: 0.25 MG, QOD
     Route: 058
     Dates: start: 20120719

REACTIONS (6)
  - Loss of consciousness [None]
  - Loss of consciousness [None]
  - Loss of consciousness [None]
  - Loss of consciousness [None]
  - Injection site pain [None]
  - Injection site bruising [None]
